FAERS Safety Report 6021559-7 (Version None)
Quarter: 2008Q4

REPORT INFORMATION
  Report Type: 
  Country: None (occurrence: None)
  Receive Date: 20081229
  Receipt Date: 20081218
  Transmission Date: 20090506
  Serious: Yes (Death)
  Sender: FDA-Public Use
  Company Number: PHHY2008JP33109

PATIENT
  Sex: Male
  Weight: 63 kg

DRUGS (11)
  1. DIOVAN [Suspect]
     Indication: HYPERTENSION
     Dosage: 160 MG DAILY
     Route: 048
     Dates: start: 20071128, end: 20080919
  2. MAINTATE [Concomitant]
     Indication: HYPERTENSION
     Dosage: 5 MG
     Route: 048
     Dates: end: 20080919
  3. RENIVACE [Concomitant]
     Dosage: 10 MG
     Route: 048
     Dates: end: 20071119
  4. DIGOXIN [Concomitant]
     Dosage: 0.125 MG
     Route: 048
     Dates: end: 20080919
  5. PANALDINE [Concomitant]
     Dosage: 300 MG
     Route: 048
     Dates: end: 20071119
  6. WARFARIN [Concomitant]
     Dosage: 6 MG
     Route: 048
     Dates: start: 20071128, end: 20080919
  7. DEPAKENE [Concomitant]
     Dosage: 1200 MG
     Route: 048
     Dates: end: 20080919
  8. OMEPRAL [Concomitant]
     Dosage: UNK
     Route: 048
     Dates: start: 20071119, end: 20080108
  9. TAKEPRON [Concomitant]
     Dosage: 15 MG
     Route: 048
     Dates: start: 20080823, end: 20080919
  10. TEGRETOL [Concomitant]
     Dosage: 200 MG
     Route: 048
     Dates: start: 20080823, end: 20080919
  11. AMARYL [Concomitant]
     Dosage: 3 MG
     Route: 048
     Dates: end: 20080919

REACTIONS (2)
  - BLOOD GLUCOSE INCREASED [None]
  - BRAIN STEM INFARCTION [None]
